FAERS Safety Report 9419328 (Version 1)
Quarter: 2013Q3

REPORT INFORMATION
  Report Type: Spontaneous
  Country: US (occurrence: US)
  Receive Date: 20130725
  Receipt Date: 20130725
  Transmission Date: 20140515
  Serious: No
  Sender: FDA-Public Use
  Company Number: US-GLAXOSMITHKLINE-A1014766A

PATIENT
  Age: 21 Year
  Sex: Male

DRUGS (2)
  1. LAMICTAL XR [Suspect]
     Indication: DEPRESSION
     Dosage: 200MG TWICE PER DAY
     Route: 048
     Dates: start: 201209
  2. EMSAM [Concomitant]
     Indication: BACK PAIN
     Route: 062

REACTIONS (5)
  - Memory impairment [Unknown]
  - Irritability [Unknown]
  - Anger [Unknown]
  - Back pain [Unknown]
  - Drug ineffective [Unknown]
